FAERS Safety Report 18225429 (Version 1)
Quarter: 2020Q3

REPORT INFORMATION
  Report Type: Spontaneous
  Country: US (occurrence: US)
  Receive Date: 20200903
  Receipt Date: 20200903
  Transmission Date: 20201103
  Serious: Yes (Other)
  Sender: FDA-Public Use
  Company Number: US-PFIZER INC-2020337827

PATIENT

DRUGS (1)
  1. IBRANCE [Suspect]
     Active Substance: PALBOCICLIB
     Dosage: UNK

REACTIONS (5)
  - Product packaging issue [Unknown]
  - Nail discomfort [Unknown]
  - Product size issue [Unknown]
  - Nail discolouration [Unknown]
  - Foreign body in throat [Unknown]
